FAERS Safety Report 12302246 (Version 2)
Quarter: 2016Q2

REPORT INFORMATION
  Report Type: Spontaneous
  Country: IT (occurrence: IT)
  Receive Date: 20160425
  Receipt Date: 20160429
  Transmission Date: 20160815
  Serious: Yes (Other)
  Sender: FDA-Public Use
  Company Number: IT-TEVA-654073ACC

PATIENT
  Age: 72 Year
  Sex: Female

DRUGS (3)
  1. CARBOPLATIN. [Suspect]
     Active Substance: CARBOPLATIN
     Indication: OVARIAN NEOPLASM
     Dosage: 470 MG CYCLICAL
     Route: 042
     Dates: start: 20150520, end: 20160112
  2. ZOFRAN - 8 MG/4 ML SOLUZIONE INIETTABILE [Concomitant]
     Indication: ANTIEMETIC SUPPORTIVE CARE
     Dosage: 8 MG
     Route: 042
     Dates: start: 20150520, end: 20160112
  3. DECADRON [Concomitant]
     Active Substance: DEXAMETHASONE
     Indication: INFLAMMATION
     Dosage: 20 MG
     Route: 042
     Dates: start: 20150520, end: 20160112

REACTIONS (1)
  - Deep vein thrombosis [Recovered/Resolved]

NARRATIVE: CASE EVENT DATE: 20150611
